FAERS Safety Report 9524568 (Version 1)
Quarter: 2013Q3

REPORT INFORMATION
  Report Type: Spontaneous
  Country: US (occurrence: US)
  Receive Date: 20130916
  Receipt Date: 20130916
  Transmission Date: 20140515
  Serious: Yes (Other)
  Sender: FDA-Public Use
  Company Number: US-PFIZER INC-2013265651

PATIENT
  Age: 18 Year
  Sex: Female
  Weight: 63.5 kg

DRUGS (7)
  1. EFFEXOR XR [Suspect]
     Indication: DEPRESSION
     Dosage: 150 MG, DAILY
  2. EFFEXOR XR [Suspect]
     Indication: ANXIETY
  3. EFFEXOR XR [Suspect]
     Indication: PANIC DISORDER
  4. PAXIL [Suspect]
     Indication: DEPRESSION
     Dosage: 30 MG, DAILY
     Dates: start: 201308, end: 20130912
  5. PAXIL [Suspect]
     Indication: ANXIETY
  6. PAXIL [Suspect]
     Indication: PANIC DISORDER
  7. SEASONALE [Concomitant]
     Indication: CONTRACEPTION
     Dosage: UNK, DAILY

REACTIONS (3)
  - Depression [Unknown]
  - Drug prescribing error [Unknown]
  - Drug ineffective [Unknown]
